FAERS Safety Report 8817856 (Version 1)
Quarter: 2012Q4

REPORT INFORMATION
  Report Type: 
  Country: US (occurrence: US)
  Receive Date: 20121004
  Receipt Date: 20121004
  Transmission Date: 20130627
  Serious: No
  Sender: FDA-Public Use
  Company Number: US-ASTRAZENECA-2012SE73718

PATIENT
  Age: 68 Year
  Sex: Female

DRUGS (4)
  1. PULMICORT FLEXHALER [Suspect]
     Dosage: 2 PUFFS IN THE MORNING
     Route: 055
  2. PULMICORT FLEXHALER [Suspect]
     Dosage: 2 PUFFS IN AT NIGHT
     Route: 055
  3. PULMICORT FLEXHALER [Suspect]
     Dosage: ONE PUFF DAILY
     Route: 055
  4. SPIRIVA [Concomitant]

REACTIONS (2)
  - Dyspnoea [Unknown]
  - Intentional drug misuse [Unknown]
